FAERS Safety Report 24961982 (Version 2)
Quarter: 2025Q1

REPORT INFORMATION
  Report Type: Spontaneous
  Country: CA (occurrence: CA)
  Receive Date: 20250212
  Receipt Date: 20250305
  Transmission Date: 20250409
  Serious: Yes (Hospitalization)
  Sender: VERTEX
  Company Number: CA-VERTEX PHARMACEUTICALS-2025-002031

PATIENT
  Age: 39 Year
  Sex: Male

DRUGS (7)
  1. TRIKAFTA [Suspect]
     Active Substance: ELEXACAFTOR\IVACAFTOR\TEZACAFTOR
     Indication: Cystic fibrosis
     Dosage: TWO TABLETS IN THE MORNING AND ONE TABLET IN THE EVENING
     Route: 048
     Dates: start: 20220412, end: 20241128
  2. TRIKAFTA [Suspect]
     Active Substance: ELEXACAFTOR\IVACAFTOR\TEZACAFTOR
     Dosage: ONE TABLET IN AM
     Route: 048
     Dates: start: 20250121
  3. ALBUTEROL [Concomitant]
     Active Substance: ALBUTEROL
  4. SODIUM CHLORIDE [Concomitant]
     Active Substance: SODIUM CHLORIDE
  5. UNSPECIFIED INGREDIENT [Concomitant]
     Active Substance: UNSPECIFIED INGREDIENT
  6. VITAMIN D [Concomitant]
     Active Substance: VITAMIN D NOS
  7. CALCIUM [Concomitant]
     Active Substance: CALCIUM
     Route: 048
     Dates: start: 20220412

REACTIONS (3)
  - Pneumonia [Recovered/Resolved]
  - Haemoptysis [Recovered/Resolved]
  - Infective pulmonary exacerbation of cystic fibrosis [Recovered/Resolved]

NARRATIVE: CASE EVENT DATE: 20250103
